FAERS Safety Report 17802360 (Version 1)
Quarter: 2020Q2

REPORT INFORMATION
  Report Type: Spontaneous
  Country: US (occurrence: US)
  Receive Date: 20200519
  Receipt Date: 20200519
  Transmission Date: 20200714
  Serious: No
  Sender: FDA-Public Use
  Company Number: US-NOVEN PHARMACEUTICALS, INC.-US2019000404

PATIENT

DRUGS (3)
  1. VITAMINS [Concomitant]
     Active Substance: VITAMINS
  2. DAYTRANA [Suspect]
     Active Substance: METHYLPHENIDATE
     Indication: ATTENTION DEFICIT HYPERACTIVITY DISORDER
  3. DAYTRANA [Suspect]
     Active Substance: METHYLPHENIDATE
     Indication: OPPOSITIONAL DEFIANT DISORDER
     Dosage: 15 MG, UNKNOWN
     Route: 062
     Dates: start: 201804

REACTIONS (7)
  - Feeling of relaxation [Not Recovered/Not Resolved]
  - Accidental exposure to product [Recovered/Resolved]
  - Product quality issue [Not Recovered/Not Resolved]
  - Product adhesion issue [Not Recovered/Not Resolved]
  - Product administration error [Not Recovered/Not Resolved]
  - Off label use [Not Recovered/Not Resolved]
  - Social avoidant behaviour [Not Recovered/Not Resolved]

NARRATIVE: CASE EVENT DATE: 201804
